FAERS Safety Report 5762124-6 (Version None)
Quarter: 2008Q2

REPORT INFORMATION
  Report Type: 
  Country: None (occurrence: None)
  Receive Date: 20080604
  Receipt Date: 20080522
  Transmission Date: 20081010
  Serious: Yes (Life-Threatening, Hospitalization)
  Sender: FDA-Public Use
  Company Number: RENA-1000125

PATIENT
  Age: 77 Year
  Sex: Female
  Weight: 54 kg

DRUGS (13)
  1. RENAGEL [Suspect]
     Indication: HYPERPHOSPHATAEMIA
     Dosage: 2-4, 6  TABLETS, ORAL
     Route: 048
     Dates: start: 20080101, end: 20080520
  2. RENAGEL [Suspect]
     Indication: HYPERPHOSPHATAEMIA
     Dosage: 2-4, 6  TABLETS, ORAL
     Route: 048
     Dates: start: 20050412
  3. OROCAL (CALCIUM CARBONATE) [Suspect]
     Indication: HYPERPHOSPHATAEMIA
     Dosage: 500 MG, QD, ORAL
     Route: 048
  4. VENOFER [Concomitant]
  5. NEORECORMON (EPOETIN BETA) [Concomitant]
  6. CODOLIPRANE (CODEINE PHOSPHATE, PARACETAMOL) [Concomitant]
  7. DEDROGYL (CALCIFEDIOL) [Concomitant]
  8. KARDEGIC (ACETYLSALICYLATE LYSINE, ACETYLSALICYLIC ACID) [Concomitant]
  9. LASIX [Concomitant]
  10. OMEPRAZOLE [Concomitant]
  11. ZOLOFT [Concomitant]
  12. MOTILIUM (DOMPERIDONE MALEATE) [Concomitant]
  13. EMLA (PRILOCAINE HYDROCHLORIDE) [Concomitant]

REACTIONS (2)
  - FAECALOMA [None]
  - LARGE INTESTINE PERFORATION [None]
